FAERS Safety Report 6834738-3 (Version None)
Quarter: 2010Q3

REPORT INFORMATION
  Report Type: 
  Country: None (occurrence: None)
  Receive Date: 20100712
  Receipt Date: 20070430
  Transmission Date: 20110219
  Serious: No
  Sender: FDA-Public Use
  Company Number: US-PFIZER INC-2007031778

PATIENT
  Sex: Female
  Weight: 81.363 kg

DRUGS (7)
  1. CHANTIX [Suspect]
     Indication: SMOKING CESSATION THERAPY
     Dates: start: 20070415
  2. ACETYLSALICYLIC ACID [Concomitant]
  3. DIOVAN HCT [Concomitant]
     Indication: HYPERTENSION
  4. EFFEXOR [Concomitant]
  5. PLAVIX [Concomitant]
  6. PREVACID [Concomitant]
  7. LIPITOR [Concomitant]

REACTIONS (3)
  - MEDICATION ERROR [None]
  - RETCHING [None]
  - VOMITING [None]
